FAERS Safety Report 25310786 (Version 1)
Quarter: 2025Q2

REPORT INFORMATION
  Report Type: Report from Study
  Country: TH (occurrence: TH)
  Receive Date: 20250514
  Receipt Date: 20250514
  Transmission Date: 20250717
  Serious: Yes (Other)
  Sender: ROCHE
  Company Number: TH-ROCHE-10000278344

PATIENT
  Age: 60 Year
  Sex: Female

DRUGS (3)
  1. ALECENSA [Suspect]
     Active Substance: ALECTINIB HYDROCHLORIDE
     Indication: Non-small cell lung cancer
     Route: 065
  2. CAPMATINIB [Concomitant]
     Active Substance: CAPMATINIB
  3. XGEVA [Concomitant]
     Active Substance: DENOSUMAB

REACTIONS (4)
  - Dyspnoea exertional [Unknown]
  - Compression fracture [Unknown]
  - Metastases to bone [Unknown]
  - Off label use [Unknown]
